FAERS Safety Report 7935479-1 (Version None)
Quarter: 2011Q4

REPORT INFORMATION
  Report Type: 
  Country: None (occurrence: None)
  Receive Date: 20111123
  Receipt Date: 20111116
  Transmission Date: 20120403
  Serious: Yes (Hospitalization, Other)
  Sender: FDA-Public Use
  Company Number: US-BRISTOL-MYERS SQUIBB COMPANY-14296172

PATIENT
  Age: 67 Year
  Sex: Male
  Weight: 78 kg

DRUGS (1)
  1. CISPLATIN [Suspect]
     Indication: PHARYNGEAL CANCER STAGE UNSPECIFIED
     Dosage: STARTED ON 23JUN08
     Dates: start: 20080623, end: 20080714

REACTIONS (6)
  - STOMATITIS [None]
  - HYPOTENSION [None]
  - DEVICE OCCLUSION [None]
  - NAUSEA [None]
  - DEHYDRATION [None]
  - VOMITING [None]
